FAERS Safety Report 6785187-8 (Version None)
Quarter: 2010Q2

REPORT INFORMATION
  Report Type: 
  Country: None (occurrence: None)
  Receive Date: 20100621
  Receipt Date: 20100621
  Transmission Date: 20101027
  Serious: Yes (Hospitalization)
  Sender: FDA-Public Use
  Company Number: None

PATIENT
  Age: 20 Year
  Sex: Female
  Weight: 68.0396 kg

DRUGS (1)
  1. LEXAPRO [Suspect]
     Indication: DEPRESSED MOOD
     Dosage: 20 MG TWICE/ DAY PO
     Route: 048
     Dates: start: 20040321, end: 20040825

REACTIONS (2)
  - BIPOLAR DISORDER [None]
  - MANIA [None]
